FAERS Safety Report 12168567 (Version 2)
Quarter: 2016Q3

REPORT INFORMATION
  Report Type: Spontaneous
  Country: US (occurrence: US)
  Receive Date: 20160310
  Receipt Date: 20160701
  Transmission Date: 20161109
  Serious: Yes (Other)
  Sender: FDA-Public Use
  Company Number: US-009507513-1603USA001746

PATIENT
  Age: 28 Year
  Sex: Female
  Weight: 106.58 kg

DRUGS (1)
  1. NEXPLANON [Suspect]
     Active Substance: ETONOGESTREL
     Indication: CONTRACEPTION
     Dosage: 68 MG, UNK
     Route: 059
     Dates: start: 20150918

REACTIONS (4)
  - Pregnancy with implant contraceptive [Unknown]
  - Abortion induced [Unknown]
  - Complication associated with device [Not Recovered/Not Resolved]
  - Unintended pregnancy [Unknown]

NARRATIVE: CASE EVENT DATE: 201511
